FAERS Safety Report 14937456 (Version 3)
Quarter: 2018Q3

REPORT INFORMATION
  Report Type: Report from Study
  Country: DE (occurrence: DE)
  Receive Date: 20180525
  Receipt Date: 20180912
  Transmission Date: 20181010
  Serious: Yes (Other)
  Sender: FDA-Public Use
  Company Number: DE-ROCHE-2129203

PATIENT

DRUGS (2)
  1. ALTEPLASE. [Suspect]
     Active Substance: ALTEPLASE
     Dosage: 90 PERCENT OF 0.9 MG/KG BY INFUSION DURING A 60?MINUTE PERIOD
     Route: 042
  2. ALTEPLASE. [Suspect]
     Active Substance: ALTEPLASE
     Indication: ISCHAEMIC STROKE
     Dosage: 0.9 MG/KG BODY?WEIGHT UP TO A MAXIMUM OF 90 MG, 10% AS BOLUS
     Route: 040

REACTIONS (1)
  - Mental disorder [Unknown]
